FAERS Safety Report 18962063 (Version 1)
Quarter: 2021Q1

REPORT INFORMATION
  Report Type: Spontaneous
  Country: US (occurrence: US)
  Receive Date: 20210303
  Receipt Date: 20210303
  Transmission Date: 20210420
  Serious: Yes (Hospitalization, Other)
  Sender: FDA-Public Use
  Company Number: US-HIKMA PHARMACEUTICALS USA INC.-US-H14001-21-53760

PATIENT
  Age: 64 Year
  Sex: Female

DRUGS (6)
  1. LETROZOLE. [Suspect]
     Active Substance: LETROZOLE
     Indication: LEIOMYOSARCOMA
     Dosage: UNKNOWN
     Route: 065
  2. IFOSFAMIDE. [Suspect]
     Active Substance: IFOSFAMIDE
     Indication: LEIOMYOSARCOMA
     Dosage: UNKNOWN
     Route: 065
  3. OLARATUMA [Suspect]
     Active Substance: OLARATUMAB
     Indication: LEIOMYOSARCOMA
     Dosage: UNKNOWN
     Route: 065
  4. DOCETAXEL. [Suspect]
     Active Substance: DOCETAXEL
     Indication: LEIOMYOSARCOMA
     Dosage: UNKNOWN
     Route: 065
  5. GEMCITABINE. [Suspect]
     Active Substance: GEMCITABINE
     Indication: LEIOMYOSARCOMA
     Dosage: UNKNOWN
     Route: 065
  6. DOXORUBICIN [Suspect]
     Active Substance: DOXORUBICIN
     Indication: LEIOMYOSARCOMA
     Dosage: UNKNOWN
     Route: 065

REACTIONS (7)
  - Nephrogenic diabetes insipidus [Recovering/Resolving]
  - Acidosis [Recovering/Resolving]
  - Nephropathy toxic [Recovering/Resolving]
  - Mucosal inflammation [Unknown]
  - Tachycardia [Recovering/Resolving]
  - Skin turgor decreased [Unknown]
  - Fanconi syndrome [Recovering/Resolving]
